FAERS Safety Report 24426849 (Version 1)
Quarter: 2024Q4

REPORT INFORMATION
  Report Type: Spontaneous
  Country: US (occurrence: US)
  Receive Date: 20241011
  Receipt Date: 20241011
  Transmission Date: 20250115
  Serious: No
  Sender: ROCHE
  Company Number: US-ROCHE-10000102475

PATIENT
  Sex: Male

DRUGS (2)
  1. ACTEMRA [Suspect]
     Active Substance: TOCILIZUMAB
     Indication: Product used for unknown indication
     Dosage: 80MG/4ML VIALS
     Route: 065
  2. ACTEMRA [Suspect]
     Active Substance: TOCILIZUMAB
     Dosage: 400MG/20ML VIALS
     Route: 065

REACTIONS (2)
  - Product storage error [Unknown]
  - No adverse event [Unknown]
